FAERS Safety Report 5287225-0 (Version None)
Quarter: 2007Q2

REPORT INFORMATION
  Report Type: 
  Country: None (occurrence: None)
  Receive Date: 20070404
  Receipt Date: 20070326
  Transmission Date: 20071010
  Serious: Yes (Other)
  Sender: FDA-Public Use
  Company Number: US-PFIZER INC-2007024151

PATIENT
  Sex: Female
  Weight: 59 kg

DRUGS (4)
  1. SUTENT [Suspect]
     Indication: RENAL CELL CARCINOMA STAGE UNSPECIFIED
  2. BENICAR [Concomitant]
  3. LEXAPRO [Concomitant]
  4. NEXIUM [Concomitant]

REACTIONS (5)
  - FATIGUE [None]
  - MYDRIASIS [None]
  - NAUSEA [None]
  - PUPIL FIXED [None]
  - VOMITING [None]
